FAERS Safety Report 8821758 (Version 2)
Quarter: 2012Q4

REPORT INFORMATION
  Report Type: 
  Country: US (occurrence: US)
  Receive Date: 20121002
  Receipt Date: 20121022
  Transmission Date: 20130627
  Serious: Yes (Hospitalization)
  Sender: FDA-Public Use
  Company Number: US-GILEAD-2012-0062146

PATIENT
  Sex: Female

DRUGS (1)
  1. LETAIRIS [Suspect]
     Indication: PULMONARY ARTERIAL HYPERTENSION
     Dosage: 5 mg, QD
     Route: 048
     Dates: start: 20120906

REACTIONS (6)
  - Sweat gland disorder [Unknown]
  - Unevaluable event [Unknown]
  - Headache [Unknown]
  - Abdominal discomfort [Unknown]
  - Swelling [Unknown]
  - Oedema [Unknown]
